FAERS Safety Report 9530174 (Version 1)
Quarter: 2013Q3

REPORT INFORMATION
  Report Type: Spontaneous
  Country: JP (occurrence: JP)
  Receive Date: 20130917
  Receipt Date: 20130917
  Transmission Date: 20140515
  Serious: Yes (Other)
  Sender: FDA-Public Use
  Company Number: PHHY2013JP099371

PATIENT
  Age: 15 Year
  Sex: Male

DRUGS (6)
  1. ETOPOSIDE SANDOZ [Suspect]
     Indication: METASTASES TO THE MEDIASTINUM
  2. PREDNISOLONE [Suspect]
     Indication: METASTASES TO THE MEDIASTINUM
  3. VINCRISTINE SULFATE [Suspect]
     Indication: METASTASES TO THE MEDIASTINUM
  4. DOXORUBICIN [Suspect]
     Indication: METASTASES TO THE MEDIASTINUM
  5. CYCLOPHOSPHAMIDE [Suspect]
     Indication: METASTASES TO THE MEDIASTINUM
  6. RITUXIMAB [Suspect]
     Indication: METASTASES TO THE MEDIASTINUM

REACTIONS (2)
  - Neuropathy peripheral [Unknown]
  - Haematotoxicity [Unknown]
